FAERS Safety Report 10799275 (Version 2)
Quarter: 2017Q1

REPORT INFORMATION
  Report Type: Spontaneous
  Country: US (occurrence: US)
  Receive Date: 20150216
  Receipt Date: 20170214
  Transmission Date: 20170428
  Serious: Yes (Other)
  Sender: FDA-Public Use
  Company Number: US-PFIZER INC-2015058071

PATIENT
  Age: 81 Year
  Sex: Male
  Weight: 109 kg

DRUGS (1)
  1. TIKOSYN [Suspect]
     Active Substance: DOFETILIDE
     Indication: ATRIAL FIBRILLATION
     Dosage: 250 MCG, 2X/DAY (ONE IN THE MORNING AND ONE AT NIGHT)
     Dates: start: 2013

REACTIONS (2)
  - Atrial fibrillation [Unknown]
  - Pain [Unknown]

NARRATIVE: CASE EVENT DATE: 20150209
